FAERS Safety Report 8344425 (Version 2)
Quarter: 2013Q1

REPORT INFORMATION
  Report Type: Spontaneous
  Country: US (occurrence: US)
  Receive Date: 20120119
  Receipt Date: 20130131
  Transmission Date: 20140127
  Serious: Yes (Death)
  Sender: FDA-Public Use
  Company Number: PHEH2012US001653

PATIENT
  Age: 83 Year
  Sex: Female

DRUGS (6)
  1. RECLAST [Suspect]
     Indication: OSTEOPOROSIS
     Dosage: 5 MG/100 ML
     Route: 042
     Dates: start: 20101116, end: 20101117
  2. PREDNISONE [Concomitant]
     Dosage: 1 MG, UNK
     Route: 048
     Dates: start: 20100927
  3. AMOXICILLIN [Concomitant]
     Dosage: 250 MG, ONCE/SINGLE
     Route: 048
  4. LASIX [Concomitant]
     Dosage: 10 MG/L, ONCE/SINGLE
     Route: 048
     Dates: start: 20070919
  5. NASONEX [Concomitant]
     Dosage: 50 MCG
     Route: 045
  6. VICODIN [Concomitant]
     Dosage: 500 MG, ONCE/SINGLE
     Route: 048

REACTIONS (1)
  - Death [Fatal]
